FAERS Safety Report 9596721 (Version 1)
Quarter: 2013Q4

REPORT INFORMATION
  Report Type: Spontaneous
  Country: FR (occurrence: FR)
  Receive Date: 20131004
  Receipt Date: 20131004
  Transmission Date: 20140711
  Serious: Yes (Hospitalization)
  Sender: FDA-Public Use
  Company Number: FR-GLAXOSMITHKLINE-B0925766A

PATIENT
  Sex: Female

DRUGS (5)
  1. DEROXAT [Suspect]
     Indication: PRODUCT USED FOR UNKNOWN INDICATION
     Dosage: 20MG TWICE PER DAY
     Route: 048
     Dates: start: 201204
  2. ZYPREXA [Suspect]
     Indication: PRODUCT USED FOR UNKNOWN INDICATION
     Dosage: 5MG TWICE PER DAY
     Route: 065
     Dates: start: 201208
  3. SERESTA [Concomitant]
     Dosage: 10MG THREE TIMES PER DAY
     Route: 065
     Dates: start: 201207
  4. RISPERDAL [Concomitant]
     Dosage: 2MG PER DAY
     Route: 065
     Dates: start: 201207, end: 201208
  5. ALPRAZOLAM [Concomitant]
     Dosage: 3UNIT PER DAY
     Route: 065
     Dates: end: 201207

REACTIONS (3)
  - Premature labour [Recovered/Resolved]
  - Psychiatric decompensation [Unknown]
  - Exposure during pregnancy [Unknown]
